FAERS Safety Report 8142227-1 (Version None)
Quarter: 2012Q1

REPORT INFORMATION
  Report Type: 
  Country: None (occurrence: None)
  Receive Date: 20120103
  Receipt Date: 20111025
  Transmission Date: 20120608
  Serious: No
  Sender: FDA-Public Use
  Company Number: AE-2011-002385

PATIENT
  Age: 43 Year
  Sex: Male
  Weight: 116.1208 kg

DRUGS (8)
  1. HYDROCHLOROTHIAZIDE [Concomitant]
  2. PEGASYS [Concomitant]
  3. ABILIFY [Concomitant]
  4. TRAMADOL HCL [Concomitant]
  5. INCIVEK [Suspect]
     Dosage: 2250 MG (750 MG, 1 IN 8 HR)
     Dates: start: 20111012
  6. RIBAVIRIN [Concomitant]
  7. LISINOPRIL [Concomitant]
  8. GLYCOSIDE [Concomitant]

REACTIONS (4)
  - INJECTION SITE PAIN [None]
  - INJECTION SITE PRURITUS [None]
  - PROCTALGIA [None]
  - HAEMORRHOIDS [None]
